FAERS Safety Report 17735607 (Version 1)
Quarter: 2020Q2

REPORT INFORMATION
  Report Type: Spontaneous
  Country: IT (occurrence: IT)
  Receive Date: 20200501
  Receipt Date: 20200501
  Transmission Date: 20200714
  Serious: Yes (Hospitalization)
  Sender: FDA-Public Use
  Company Number: IT-PFIZER INC-2020173194

PATIENT
  Age: 57 Year
  Sex: Male

DRUGS (2)
  1. TAVOR (LORAZEPAM) [Suspect]
     Active Substance: LORAZEPAM
     Dosage: 4 DF, SINGLE
     Route: 048
     Dates: start: 20200214, end: 20200214
  2. GABAPENTIN TEVA [Suspect]
     Active Substance: GABAPENTIN
     Dosage: 4 DF, SINGLE
     Route: 048
     Dates: start: 20200214, end: 20200214

REACTIONS (3)
  - Suicide attempt [Recovering/Resolving]
  - Drug abuse [Recovering/Resolving]
  - Somnolence [Recovering/Resolving]

NARRATIVE: CASE EVENT DATE: 20200214
